FAERS Safety Report 12900784 (Version 3)
Quarter: 2016Q4

REPORT INFORMATION
  Report Type: Report from Study
  Country: TW (occurrence: TW)
  Receive Date: 20161101
  Receipt Date: 20161116
  Transmission Date: 20170207
  Serious: Yes (Hospitalization, Other)
  Sender: FDA-Public Use
  Company Number: PHHY2016TW148589

PATIENT
  Age: 73 Year
  Sex: Female
  Weight: 55.8 kg

DRUGS (1)
  1. EXJADE [Suspect]
     Active Substance: DEFERASIROX
     Indication: MYELODYSPLASTIC SYNDROME
     Dosage: 375 MG, UNK
     Route: 048
     Dates: start: 20160913, end: 20161004

REACTIONS (6)
  - Pyrexia [Recovering/Resolving]
  - Gastrointestinal haemorrhage [Recovering/Resolving]
  - Pneumonia staphylococcal [Recovering/Resolving]
  - Enterococcal infection [Unknown]
  - Salmonellosis [Unknown]
  - Hypokalaemia [Recovering/Resolving]

NARRATIVE: CASE EVENT DATE: 20161010
